FAERS Safety Report 7101907-7 (Version None)
Quarter: 2010Q4

REPORT INFORMATION
  Report Type: 
  Country: None (occurrence: None)
  Receive Date: 20101115
  Receipt Date: 20090515
  Transmission Date: 20110411
  Serious: No
  Sender: FDA-Public Use
  Company Number: US-KINGPHARMUSA00001-K200900360

PATIENT
  Sex: Female
  Weight: 53.515 kg

DRUGS (5)
  1. AVINZA [Suspect]
     Indication: COMPLEX REGIONAL PAIN SYNDROME
     Dosage: 30 MG, QD
     Route: 048
     Dates: start: 20020101, end: 20080101
  2. AVINZA [Suspect]
     Indication: ROTATOR CUFF SYNDROME
     Dosage: 30 MG, QD
     Dates: start: 20080401, end: 20090303
  3. AVINZA [Suspect]
     Dosage: 30 MG, QD
     Dates: start: 20090415
  4. DIOVAN [Concomitant]
     Indication: HYPERTENSION
     Dosage: UNK
  5. BYSTOLIC [Concomitant]
     Indication: HYPERTENSION
     Dosage: 5 MG, UNK
     Dates: start: 20090508

REACTIONS (9)
  - ASTHENIA [None]
  - CHILLS [None]
  - CONSTIPATION [None]
  - DYSKINESIA [None]
  - MALAISE [None]
  - MOANING [None]
  - TREMOR [None]
  - WEIGHT DECREASED [None]
  - WITHDRAWAL SYNDROME [None]
